FAERS Safety Report 25160248 (Version 1)
Quarter: 2025Q2

REPORT INFORMATION
  Report Type: Report from Study
  Country: LK (occurrence: LK)
  Receive Date: 20250404
  Receipt Date: 20250404
  Transmission Date: 20250716
  Serious: Yes (Death)
  Sender: RANBAXY
  Company Number: LK-SUN PHARMACEUTICAL INDUSTRIES LTD-2025R1-502235

PATIENT
  Age: 42 Year
  Sex: Female

DRUGS (2)
  1. NIMODIPINE [Suspect]
     Active Substance: NIMODIPINE
     Indication: Subarachnoid haemorrhage
     Route: 048
  2. PHENYTOIN [Suspect]
     Active Substance: PHENYTOIN
     Indication: Subarachnoid haemorrhage
     Route: 065

REACTIONS (1)
  - Dengue fever [Fatal]
